FAERS Safety Report 11254607 (Version 1)
Quarter: 2015Q3

REPORT INFORMATION
  Report Type: Spontaneous
  Country: US (occurrence: None)
  Receive Date: 20150708
  Receipt Date: 20150708
  Transmission Date: 20151125
  Serious: Yes (Other)
  Sender: FDA-Public Use
  Company Number: None

PATIENT
  Age: 70 Year
  Sex: Female
  Weight: 61.69 kg

DRUGS (9)
  1. RESTASIS [Suspect]
     Active Substance: CYCLOSPORINE
     Indication: DRY EYE
     Dosage: 2 VIALS
     Route: 047
  2. CLONAZEPAM. [Concomitant]
     Active Substance: CLONAZEPAM
  3. XYREM [Concomitant]
     Active Substance: SODIUM OXYBATE
  4. COBEGAN [Concomitant]
  5. LATANOPROST. [Concomitant]
     Active Substance: LATANOPROST
  6. SOOTHE ARTIFICIAL TEARS [Concomitant]
  7. ASPIRIN. [Concomitant]
     Active Substance: ASPIRIN
  8. MULTI VIT [Concomitant]
  9. CPAP MACHINE [Concomitant]

REACTIONS (6)
  - Foreign body sensation in eyes [None]
  - Eye pain [None]
  - Eye pruritus [None]
  - Ocular hyperaemia [None]
  - Burning sensation [None]
  - Vision blurred [None]

NARRATIVE: CASE EVENT DATE: 20150701
